FAERS Safety Report 4454440-5 (Version None)
Quarter: 2004Q3

REPORT INFORMATION
  Report Type: 
  Country: None (occurrence: None)
  Receive Date: 20040917
  Receipt Date: 20040917
  Transmission Date: 20050211
  Serious: Yes (Hospitalization)
  Sender: FDA-Public Use
  Company Number: None

PATIENT
  Age: 86 Year
  Sex: Male
  Weight: 69.5 kg

DRUGS (3)
  1. ASPIRIN [Suspect]
     Dosage: ASA 81 MG
     Dates: start: 20040726
  2. PLAVIX [Suspect]
     Indication: CORONARY ANGIOPLASTY
     Dosage: PLAVIX 75 PO
     Route: 048
     Dates: start: 20040726
  3. PLAVIX [Suspect]
     Indication: CORONARY ARTERY DISEASE
     Dosage: PLAVIX 75 PO
     Route: 048
     Dates: start: 20040726

REACTIONS (4)
  - BLOOD PRESSURE DECREASED [None]
  - GASTROINTESTINAL HAEMORRHAGE [None]
  - HAEMOGLOBIN DECREASED [None]
  - RECTAL HAEMORRHAGE [None]
